FAERS Safety Report 7414844-5 (Version None)
Quarter: 2011Q2

REPORT INFORMATION
  Report Type: 
  Country: None (occurrence: None)
  Receive Date: 20110414
  Receipt Date: 20110411
  Transmission Date: 20111010
  Serious: Yes (Other)
  Sender: FDA-Public Use
  Company Number: US-PFIZER INC-2011020799

PATIENT
  Sex: Female

DRUGS (5)
  1. CHANTIX [Suspect]
     Indication: SMOKING CESSATION THERAPY
     Dosage: STARTER MONTH PACKS AND CONTINUED MONTH PACKS
     Dates: start: 20080222, end: 20080227
  2. VICODIN [Concomitant]
     Indication: ANALGESIC THERAPY
  3. NOVOLOG [Concomitant]
     Indication: DIABETES MELLITUS
     Dosage: UNK
     Dates: start: 20070101
  4. LANTUS [Concomitant]
     Indication: DIABETES MELLITUS
     Dosage: UNK
     Dates: start: 20060101
  5. VICODIN [Concomitant]
     Indication: WART EXCISION
     Dosage: UNK
     Dates: start: 20070101, end: 20090101

REACTIONS (9)
  - PANIC ATTACK [None]
  - AMNESIA [None]
  - NIGHTMARE [None]
  - BLOOD PRESSURE INCREASED [None]
  - ANXIETY [None]
  - INSOMNIA [None]
  - DEPRESSION [None]
  - PARANOIA [None]
  - PALPITATIONS [None]
